FAERS Safety Report 9504881 (Version 2)
Quarter: 2013Q3

REPORT INFORMATION
  Report Type: Report from Study
  Country: BR (occurrence: BR)
  Receive Date: 20130906
  Receipt Date: 20130906
  Transmission Date: 20140515
  Serious: Yes (Hospitalization, Other)
  Sender: FDA-Public Use
  Company Number: BR-ROCHE-765376

PATIENT
  Age: 65 Year
  Sex: Female
  Weight: 63 kg

DRUGS (18)
  1. TOCILIZUMAB [Suspect]
     Indication: RHEUMATOID ARTHRITIS
     Dosage: ROUTE : ENDOVENOUS , FORM : INFUSION. 8 INFUSIONS RECEIVED.
     Route: 050
     Dates: start: 20110109, end: 201104
  2. MABTHERA [Suspect]
     Indication: RHEUMATOID ARTHRITIS
     Dosage: 1ST INFUSION
     Route: 065
  3. PRESSAT [Concomitant]
     Route: 065
  4. PANTOPRAZOLE [Concomitant]
     Route: 065
  5. SYNTHROID [Concomitant]
     Route: 065
  6. SYNTHROID [Concomitant]
     Route: 065
  7. GLUCOSAMINE SULFATE [Concomitant]
     Route: 065
  8. CHONDROITIN SULFATE [Concomitant]
     Route: 065
  9. CALCIUM CARBONATE [Concomitant]
     Route: 065
  10. CRESTOR [Concomitant]
     Route: 065
  11. CRESTOR [Concomitant]
     Route: 065
  12. METHOTREXATE [Concomitant]
     Route: 065
  13. ENDOFOLIN [Concomitant]
     Route: 065
  14. VITAMIN D3 [Concomitant]
     Route: 065
  15. RANITIDINE [Concomitant]
     Route: 065
  16. LOSARTAN [Concomitant]
     Route: 065
  17. ARTROLIVE [Concomitant]
  18. FOLIC ACID [Concomitant]
     Route: 065

REACTIONS (6)
  - Hypertension [Recovering/Resolving]
  - Cataract [Unknown]
  - Tremor [Recovered/Resolved]
  - Influenza [Recovering/Resolving]
  - Throat tightness [Unknown]
  - Bronchitis [Unknown]
